FAERS Safety Report 6285143-2 (Version None)
Quarter: 2009Q3

REPORT INFORMATION
  Report Type: 
  Country: None (occurrence: None)
  Receive Date: 20090727
  Receipt Date: 20090715
  Transmission Date: 20100115
  Serious: Yes (Hospitalization)
  Sender: FDA-Public Use
  Company Number: DE-PFIZER INC-2009244703

PATIENT
  Age: 52 Year

DRUGS (4)
  1. HYDROXYZINE HCL [Suspect]
     Dosage: 15 DF, ONCE
     Route: 048
     Dates: start: 20090715, end: 20090715
  2. DOXEPIN HCL [Suspect]
     Dosage: 4 DF, ONCE
     Route: 048
     Dates: start: 20090715, end: 20090715
  3. MELPERONE HYDROCHLORIDE [Suspect]
     Dosage: 250 MG, ONCE
     Route: 048
     Dates: start: 20090715, end: 20090715
  4. ALCOHOL [Suspect]
     Dosage: UNK
     Dates: start: 20090715, end: 20090715

REACTIONS (3)
  - FATIGUE [None]
  - SUICIDE ATTEMPT [None]
  - TACHYCARDIA [None]
